FAERS Safety Report 8920718 (Version 2)
Quarter: 2013Q1

REPORT INFORMATION
  Report Type: Spontaneous
  Country: US (occurrence: US)
  Receive Date: 20121122
  Receipt Date: 20130218
  Transmission Date: 20140127
  Serious: No
  Sender: FDA-Public Use
  Company Number: US-009507513-1211USA006343

PATIENT
  Age: 26 None
  Sex: Female
  Weight: 73.92 kg

DRUGS (1)
  1. NEXPLANON [Suspect]
     Indication: CONTRACEPTION
     Dosage: 1 DF, UNK
     Route: 059
     Dates: start: 20120609

REACTIONS (5)
  - Emotional disorder [Unknown]
  - Hypoaesthesia [Recovered/Resolved]
  - Device dislocation [Unknown]
  - Medical device complication [Unknown]
  - Medical device complication [Unknown]
